FAERS Safety Report 23363635 (Version 1)
Quarter: 2024Q1

REPORT INFORMATION
  Report Type: Report from Study
  Country: NL (occurrence: NL)
  Receive Date: 20240103
  Receipt Date: 20240103
  Transmission Date: 20240409
  Serious: Yes (Death)
  Sender: FDA-Public Use
  Company Number: NL-ABBVIE-5569489

PATIENT
  Age: 89 Year
  Sex: Male

DRUGS (3)
  1. CARBIDOPA\LEVODOPA [Suspect]
     Active Substance: CARBIDOPA\LEVODOPA
     Indication: Parkinson^s disease
     Dosage: MD: 4.0, CD: 2.8ML/H, ED: 1.5ML, ND: 3.0ML, CND: 2.5ML/H, END: 1.5ML, ?DURATION TEXT: REMAINS AT ...
     Route: 050
     Dates: start: 20230808
  2. CARBIDOPA\LEVODOPA [Suspect]
     Active Substance: CARBIDOPA\LEVODOPA
     Route: 050
     Dates: start: 20161215
  3. POLYETHYLENE GLYCOLS [Concomitant]
     Active Substance: POLYETHYLENE GLYCOLS
     Indication: Abnormal faeces
     Route: 065

REACTIONS (2)
  - Multi-organ disorder [Fatal]
  - Parkinson^s disease [Fatal]
